FAERS Safety Report 17299593 (Version 1)
Quarter: 2020Q1

REPORT INFORMATION
  Report Type: Spontaneous
  Country: US (occurrence: US)
  Receive Date: 20200121
  Receipt Date: 20200121
  Transmission Date: 20200409
  Serious: Yes (Death)
  Sender: FDA-Public Use
  Company Number: None

PATIENT
  Sex: Female
  Weight: 105.8 kg

DRUGS (14)
  1. CAPECITABINE TABLET [Suspect]
     Active Substance: CAPECITABINE
     Indication: BREAST CANCER
     Dosage: ?          OTHER FREQUENCY:2TAB AM;?
     Route: 048
     Dates: start: 20181105, end: 20200121
  2. METHADONE HCL 5MG [Concomitant]
  3. LETROZOLE 2.5MG [Concomitant]
     Active Substance: LETROZOLE
  4. DEXAMETHASONE 2MG [Concomitant]
  5. PROTONIX [Concomitant]
     Active Substance: PANTOPRAZOLE SODIUM
  6. LOSARTAN POTASSIUM 50MG [Concomitant]
     Active Substance: LOSARTAN POTASSIUM
  7. SENNA 8.6MG [Concomitant]
  8. METOPROLOL TARTRATE 25MG [Concomitant]
     Active Substance: METOPROLOL TARTRATE
  9. ATORVASTATIN CALCIUM 20MG [Concomitant]
  10. LACTULOSE. [Concomitant]
     Active Substance: LACTULOSE
  11. METFORMIN [Concomitant]
     Active Substance: METFORMIN HYDROCHLORIDE
  12. ASPIRIN 81MG [Concomitant]
     Active Substance: ASPIRIN
  13. ZOFRAN [Concomitant]
     Active Substance: ONDANSETRON HYDROCHLORIDE
  14. MORPHINE SULFATE (CONCENTRATE) [Concomitant]
     Active Substance: MORPHINE SULFATE

REACTIONS (1)
  - Disease progression [None]
